FAERS Safety Report 20055086 (Version 1)
Quarter: 2021Q4

REPORT INFORMATION
  Report Type: Spontaneous
  Country: US (occurrence: US)
  Receive Date: 20211110
  Receipt Date: 20211110
  Transmission Date: 20220303
  Serious: Yes (Hospitalization, Other)
  Sender: FDA-Public Use
  Company Number: US-ALLERGAN-2135436US

PATIENT
  Sex: Female
  Weight: 70.748 kg

DRUGS (3)
  1. LILETTA [Suspect]
     Active Substance: LEVONORGESTREL
     Indication: Contraception
     Dosage: 52 MG, SINGLE
     Route: 015
     Dates: start: 20210824, end: 20211022
  2. LEXAPRO [Suspect]
     Active Substance: ESCITALOPRAM OXALATE
     Indication: Perinatal depression
     Dosage: 10 MG, QD
     Route: 048
     Dates: start: 20210825
  3. ERRIN [Concomitant]
     Active Substance: NORETHINDRONE
     Indication: Contraception
     Dosage: 1 DF, QD
     Route: 048
     Dates: start: 20210921

REACTIONS (3)
  - Device dislocation [Unknown]
  - Uterine perforation [Unknown]
  - Off label use [Unknown]

NARRATIVE: CASE EVENT DATE: 20210101
